FAERS Safety Report 5025570-4 (Version None)
Quarter: 2006Q2

REPORT INFORMATION
  Report Type: 
  Country: None (occurrence: None)
  Receive Date: 20060426
  Receipt Date: 20060208
  Transmission Date: 20061013
  Serious: Yes (Other)
  Sender: FDA-Public Use
  Company Number: 2006020341

PATIENT
  Age: 64 Year
  Sex: Female
  Weight: 158.759 kg

DRUGS (7)
  1. LYRICA [Suspect]
     Indication: NEUROPATHY
     Dosage: 150 MG (50 MG,3 IN 1 D)
     Dates: start: 20060204
  2. DYAZIDE [Concomitant]
  3. PROMETRIUM [Concomitant]
  4. FISH OIL (FISH OIL) [Concomitant]
  5. VITAMINS (VITAMINS) [Concomitant]
  6. ASPIRIN [Concomitant]
  7. VITAMIN B12 [Concomitant]

REACTIONS (1)
  - DRY MOUTH [None]
